FAERS Safety Report 7691544-8 (Version None)
Quarter: 2011Q3

REPORT INFORMATION
  Report Type: 
  Country: None (occurrence: None)
  Receive Date: 20110818
  Receipt Date: 20110816
  Transmission Date: 20111222
  Serious: Yes (Other)
  Sender: FDA-Public Use
  Company Number: PHHY2011IN73712

PATIENT
  Age: 73 Year
  Sex: Male

DRUGS (4)
  1. EXELON [Suspect]
     Dosage: 4.6 MG,(EXELON PATCH 5CM) DAILY
     Route: 062
  2. ADMENTA [Concomitant]
     Dosage: 5 MG,TWICE A DAY
  3. FOLICITA [Concomitant]
     Dosage: UNK UKN, QD
  4. EXELON [Suspect]
     Dosage: 4.6 MG,(EXELON PATCH 5CM) DAILY
     Route: 062
     Dates: end: 20110730

REACTIONS (1)
  - DERMATITIS BULLOUS [None]
